FAERS Safety Report 23740944 (Version 1)
Quarter: 2024Q2

REPORT INFORMATION
  Report Type: Spontaneous
  Country: US (occurrence: US)
  Receive Date: 20240415
  Receipt Date: 20240415
  Transmission Date: 20240715
  Serious: No
  Sender: FDA-Public Use
  Company Number: US-002147023-NVSC2024US078397

PATIENT
  Sex: Male

DRUGS (2)
  1. TAFINLAR [Suspect]
     Active Substance: DABRAFENIB MESYLATE
     Indication: Brain neoplasm malignant
     Dosage: UNK (DISSOLVE 7 TABLETS IN 10 ML OF WATER AND TAKE BY MOUTH 2 TIMES A DAY)
     Route: 048
     Dates: start: 202402
  2. MEKINIST [Suspect]
     Active Substance: TRAMETINIB DIMETHYL SULFOXIDE
     Indication: Brain neoplasm malignant
     Dosage: 1 MG, QD
     Route: 048
     Dates: start: 202402

REACTIONS (3)
  - Feeling hot [Recovered/Resolved]
  - Erythema [Unknown]
  - Epistaxis [Recovered/Resolved]
